FAERS Safety Report 17093487 (Version 1)
Quarter: 2019Q4

REPORT INFORMATION
  Report Type: Report from Study
  Country: CH (occurrence: CH)
  Receive Date: 20191129
  Receipt Date: 20191129
  Transmission Date: 20200122
  Serious: Yes (Death, Hospitalization)
  Sender: FDA-Public Use
  Company Number: PHHO2013CH001093

PATIENT
  Age: 60 Year
  Sex: Male
  Weight: 66 kg

DRUGS (2)
  1. PASIREOTIDE. [Suspect]
     Active Substance: PASIREOTIDE
     Indication: NEUROENDOCRINE CARCINOMA OF THE SKIN
     Dosage: 300 MG, TID
     Route: 058
     Dates: start: 20130108
  2. PASIREOTIDE. [Suspect]
     Active Substance: PASIREOTIDE
     Dosage: 300 MG, TID
     Route: 058
     Dates: start: 20130114, end: 20130118

REACTIONS (6)
  - Diarrhoea [Recovering/Resolving]
  - Pain [Recovering/Resolving]
  - Nausea [Recovering/Resolving]
  - General physical health deterioration [Unknown]
  - Malignant neoplasm progression [Fatal]
  - Vomiting [Recovering/Resolving]

NARRATIVE: CASE EVENT DATE: 20130111
